FAERS Safety Report 5907575-1 (Version None)
Quarter: 2008Q4

REPORT INFORMATION
  Report Type: 
  Country: None (occurrence: None)
  Receive Date: 20081002
  Receipt Date: 20081002
  Transmission Date: 20090506
  Serious: No
  Sender: FDA-Public Use
  Company Number: None

PATIENT
  Age: 68 Year
  Sex: Female
  Weight: 56.6996 kg

DRUGS (1)
  1. FENTANYL [Suspect]
     Indication: BONE NEOPLASM MALIGNANT
     Dosage: 100MCG/HR EVERY 72 HOURS TRANSDERMAL, PATCH WOULD NOT STAY ON
     Route: 062

REACTIONS (1)
  - PRODUCT QUALITY ISSUE [None]
